FAERS Safety Report 9668810 (Version 2)
Quarter: 2013Q4

REPORT INFORMATION
  Report Type: Spontaneous
  Country: US (occurrence: US)
  Receive Date: 20131105
  Receipt Date: 20131126
  Transmission Date: 20140711
  Serious: Yes (Other)
  Sender: FDA-Public Use
  Company Number: US-JNJFOC-20131017249

PATIENT
  Age: 58 Year
  Sex: Female
  Weight: 55.79 kg

DRUGS (3)
  1. REMICADE [Suspect]
     Indication: CROHN^S DISEASE
     Route: 042
     Dates: start: 201310
  2. REMICADE [Suspect]
     Indication: CROHN^S DISEASE
     Dosage: INITIATED PRIOR TO MAR-2006 WITH DIFFERENT DOSE FROM 5 MG/KG -10MG/KG AND ONCE IN EVERY 8-7-6 WEEKS
     Route: 042
     Dates: start: 2006
  3. LEVOTHYROXINE [Concomitant]
     Indication: THYROID DISORDER
     Route: 065

REACTIONS (1)
  - Amnesia [Not Recovered/Not Resolved]
